FAERS Safety Report 8099559-5 (Version None)
Quarter: 2012Q1

REPORT INFORMATION
  Report Type: 
  Country: None (occurrence: None)
  Receive Date: 20120129
  Receipt Date: 20110927
  Transmission Date: 20120608
  Serious: No
  Sender: FDA-Public Use
  Company Number: US-ABBOTT-11P-163-0858248-00

PATIENT
  Age: 48 Year
  Sex: Male

DRUGS (8)
  1. LISINOPRIL [Concomitant]
     Indication: BLOOD PRESSURE
  2. ZETIA [Concomitant]
     Indication: BLOOD CHOLESTEROL
  3. AMLODIPINE [Concomitant]
     Indication: BLOOD PRESSURE
  4. PERCOCET [Concomitant]
     Indication: PRODUCT USED FOR UNKNOWN INDICATION
  5. GABAPENTIN [Concomitant]
     Indication: PRODUCT USED FOR UNKNOWN INDICATION
  6. SIMVASTATIN [Concomitant]
     Indication: BLOOD CHOLESTEROL
  7. OXYCODONE HCL [Concomitant]
     Indication: PRODUCT USED FOR UNKNOWN INDICATION
  8. HUMIRA [Suspect]
     Indication: PSORIASIS
     Dates: start: 20110531

REACTIONS (3)
  - RHINORRHOEA [None]
  - HEADACHE [None]
  - SINUSITIS [None]
